FAERS Safety Report 10094466 (Version 1)
Quarter: 2014Q2

REPORT INFORMATION
  Report Type: Spontaneous
  Country: DE (occurrence: DE)
  Receive Date: 20140422
  Receipt Date: 20140422
  Transmission Date: 20141212
  Serious: Yes (Death, Hospitalization)
  Sender: FDA-Public Use
  Company Number: DE-MYLANLABS-2014S1008431

PATIENT
  Age: 42 Year
  Sex: Female

DRUGS (9)
  1. METHOTREXATE [Suspect]
     Indication: SJOGREN^S SYNDROME
     Dosage: 7.5-15MG ONCE PER WEEK
     Route: 048
     Dates: start: 2009, end: 2012
  2. METHOTREXATE [Suspect]
     Indication: OFF LABEL USE
     Dosage: 7.5-15MG ONCE PER WEEK
     Route: 048
     Dates: start: 2009, end: 2012
  3. METHOTREXATE [Suspect]
     Indication: SJOGREN^S SYNDROME
     Dosage: 7.5-15MG ONCE PER WEEK
     Route: 058
     Dates: start: 2009, end: 2012
  4. METHOTREXATE [Suspect]
     Indication: OFF LABEL USE
     Dosage: 7.5-15MG ONCE PER WEEK
     Route: 058
     Dates: start: 2009, end: 2012
  5. AZATHIOPRINE [Suspect]
     Indication: SJOGREN^S SYNDROME
     Dosage: 50-200 MG/DAY
     Route: 065
     Dates: start: 2008, end: 2012
  6. AZATHIOPRINE [Suspect]
     Indication: OFF LABEL USE
     Dosage: 50-200 MG/DAY
     Route: 065
     Dates: start: 2008, end: 2012
  7. CYCLOPHOSPHAMIDE [Suspect]
     Indication: SJOGREN^S SYNDROME
     Dosage: 13 CYCLES WITH 1000 MG/CYCLE
     Route: 065
     Dates: start: 2008, end: 2009
  8. RITUXIMAB [Concomitant]
     Indication: SJOGREN^S SYNDROME
     Dosage: SIX TREATMENTS
     Route: 042
     Dates: start: 2010, end: 2012
  9. IMMUNE GLOBULIN [Concomitant]
     Indication: SJOGREN^S SYNDROME
     Route: 042
     Dates: start: 200909, end: 201112

REACTIONS (10)
  - Epstein-Barr virus infection [Not Recovered/Not Resolved]
  - Diffuse large B-cell lymphoma [Fatal]
  - Cardiac arrest [Fatal]
  - Viral sepsis [Fatal]
  - Renal failure acute [Unknown]
  - Acute hepatic failure [Unknown]
  - Pancytopenia [Unknown]
  - Acute lung injury [Unknown]
  - Coagulopathy [Unknown]
  - Mucosal inflammation [Unknown]
